FAERS Safety Report 24782071 (Version 2)
Quarter: 2025Q1

REPORT INFORMATION
  Report Type: Spontaneous
  Country: US (occurrence: US)
  Receive Date: 20241227
  Receipt Date: 20250114
  Transmission Date: 20250409
  Serious: Yes (Life-Threatening, Hospitalization, Other)
  Sender: TORRENT PHARMA INC.
  Company Number: US-TORRENT-00013576

PATIENT
  Age: 54 Year
  Sex: Female

DRUGS (12)
  1. DAPSONE [Interacting]
     Active Substance: DAPSONE
     Indication: Antifungal prophylaxis
     Dosage: UNKNOWN
     Route: 065
  2. BUPROPION [Interacting]
     Active Substance: BUPROPION
     Indication: Major depression
     Dosage: UNKNOWN
     Route: 065
  3. METHYLENE BLUE [Interacting]
     Active Substance: METHYLENE BLUE
     Indication: Methaemoglobinaemia
     Route: 042
  4. PAROXETINE [Interacting]
     Active Substance: PAROXETINE
     Indication: Depression
     Dosage: UNKNOWN
     Route: 065
  5. CYTARABINE [Concomitant]
     Active Substance: CYTARABINE
     Indication: Diffuse large B-cell lymphoma recurrent
     Route: 065
  6. DEXAMETHASONE [Concomitant]
     Active Substance: DEXAMETHASONE
     Indication: Diffuse large B-cell lymphoma recurrent
     Route: 065
  7. LEVOTHYROXINE [Concomitant]
     Active Substance: LEVOTHYROXINE
     Indication: Hypothyroidism
     Dosage: UNKNOWN
     Route: 065
  8. LORAZEPAM [Concomitant]
     Active Substance: LORAZEPAM
     Indication: Anxiety disorder
     Dosage: AS NEEDED
     Route: 065
  9. OXALIPLATIN [Concomitant]
     Active Substance: OXALIPLATIN
     Indication: Diffuse large B-cell lymphoma recurrent
     Route: 065
  10. RITUXIMAB [Concomitant]
     Active Substance: RITUXIMAB
     Indication: Diffuse large B-cell lymphoma recurrent
     Route: 065
  11. CEFTRIAXONE [Concomitant]
     Active Substance: CEFTRIAXONE
     Indication: Pneumonia
     Route: 065
  12. AZITHROMYCIN [Concomitant]
     Active Substance: AZITHROMYCIN
     Indication: Pneumonia
     Route: 065

REACTIONS (4)
  - Methaemoglobinaemia [Unknown]
  - Serotonin syndrome [Recovered/Resolved]
  - Drug interaction [Recovered/Resolved]
  - Encephalopathy [Recovered/Resolved]
